FAERS Safety Report 8018331-5 (Version None)
Quarter: 2012Q1

REPORT INFORMATION
  Report Type: 
  Country: None (occurrence: None)
  Receive Date: 20120103
  Receipt Date: 20111223
  Transmission Date: 20120608
  Serious: Yes (Hospitalization)
  Sender: FDA-Public Use
  Company Number: US-BAYER-2011-052532

PATIENT
  Age: 24 Year
  Sex: Female
  Weight: 65.76 kg

DRUGS (8)
  1. IBUPROFEN [Concomitant]
  2. PREDNISONE TAB [Concomitant]
  3. METFORMIN HCL [Concomitant]
     Route: 048
  4. YASMIN [Suspect]
     Dosage: UNK
     Route: 048
     Dates: start: 20080101, end: 20090101
  5. DROSPIRENONE AND ETHINYL ESTRADIOL [Suspect]
     Dosage: UNK UNK, QD
     Route: 048
     Dates: start: 20080101, end: 20090101
  6. ALBUTEROL [Concomitant]
     Route: 055
  7. ALDACTONE [Concomitant]
     Route: 048
  8. SPIRONOLACTONE [Concomitant]

REACTIONS (5)
  - CHOLECYSTITIS CHRONIC [None]
  - PAIN [None]
  - INJURY [None]
  - GALLBLADDER DISORDER [None]
  - PANCREATITIS [None]
